FAERS Safety Report 6485450-4 (Version None)
Quarter: 2009Q4

REPORT INFORMATION
  Report Type: 
  Country: None (occurrence: None)
  Receive Date: 20091209
  Receipt Date: 20090713
  Transmission Date: 20100525
  Serious: No
  Sender: FDA-Public Use
  Company Number: US-AMGEN-KDL352975

PATIENT
  Sex: Female
  Weight: 112.6 kg

DRUGS (2)
  1. ENBREL [Suspect]
     Indication: RHEUMATOID ARTHRITIS
     Route: 058
     Dates: start: 20060801, end: 20090622
  2. ULTRAM [Concomitant]

REACTIONS (2)
  - BLISTER [None]
  - LATEX ALLERGY [None]
